FAERS Safety Report 8291253-0 (Version None)
Quarter: 2012Q2

REPORT INFORMATION
  Report Type: 
  Country: None (occurrence: None)
  Receive Date: 20120417
  Receipt Date: 20120406
  Transmission Date: 20120825
  Serious: No
  Sender: FDA-Public Use
  Company Number: US-BAYER-2012-034211

PATIENT

DRUGS (8)
  1. ALEVE (CAPLET) [Suspect]
     Indication: EAR DISCOMFORT
  2. ANTIBIOTICS [Concomitant]
     Indication: EAR DISCOMFORT
  3. ALEVE (CAPLET) [Suspect]
     Indication: NECK PAIN
     Dosage: BOTTLE COUNT: NOT REPORTED
  4. ALEVE (CAPLET) [Suspect]
     Indication: JAW DISORDER
  5. ANTIBIOTICS [Concomitant]
     Indication: PHARYNGITIS STREPTOCOCCAL
  6. ANTIBIOTICS [Concomitant]
     Indication: JAW DISORDER
  7. ANTIBIOTICS [Concomitant]
     Indication: NECK PAIN
  8. ALEVE (CAPLET) [Suspect]
     Indication: PHARYNGITIS STREPTOCOCCAL

REACTIONS (5)
  - TONSILLAR DISORDER [None]
  - HEADACHE [None]
  - NECK PAIN [None]
  - PAIN IN JAW [None]
  - FACIAL PAIN [None]
